FAERS Safety Report 8328970-X (Version None)
Quarter: 2012Q2

REPORT INFORMATION
  Report Type: 
  Country: None (occurrence: None)
  Receive Date: 20120502
  Receipt Date: 20120426
  Transmission Date: 20120825
  Serious: Yes (Hospitalization)
  Sender: FDA-Public Use
  Company Number: DE-AMGEN-DEUSP2012026337

PATIENT
  Sex: Male

DRUGS (11)
  1. DIPYRONE TAB [Concomitant]
     Indication: PAIN
     Dosage: 500 MG, QID
     Route: 048
  2. MORPHINE SULFATE [Concomitant]
     Indication: PAIN
     Dosage: 30 MG, BID
     Route: 048
  3. PANTOPRAZOLE [Concomitant]
     Dosage: 40 MG, QD
     Route: 048
  4. PREDNISOLONE [Suspect]
     Indication: B-CELL LYMPHOMA
     Dosage: 50 MG, BID
     Route: 048
     Dates: start: 20120416, end: 20120421
  5. CYCLOPHOSPHAMIDE [Suspect]
     Indication: B-CELL LYMPHOMA
     Dosage: 1600 MG, QD
     Route: 042
     Dates: start: 20120417, end: 20120417
  6. DOXORUBICIN HCL [Suspect]
     Indication: B-CELL LYMPHOMA
     Dosage: 100 MG, QD
     Route: 042
     Dates: start: 20120417, end: 20120417
  7. NEULASTA [Suspect]
     Indication: B-CELL LYMPHOMA
     Dosage: 6 MG, QD
     Route: 058
     Dates: start: 20120420, end: 20120420
  8. RITUXIMAB [Suspect]
     Indication: B-CELL LYMPHOMA
     Dosage: 750 MG, QD
     Route: 042
     Dates: start: 20120416, end: 20120416
  9. VINCRISTINE [Suspect]
     Indication: B-CELL LYMPHOMA
     Dosage: 2 MG, QD
     Route: 042
     Dates: start: 20120417, end: 20120417
  10. METOCLOPRAMIDE [Concomitant]
     Indication: VOMITING
     Dosage: 20 GTT, TID
     Route: 048
  11. ACYCLOVIR [Concomitant]
     Dosage: 400 MG, QID
     Route: 048

REACTIONS (1)
  - NEUTROPENIA [None]
